FAERS Safety Report 10119438 (Version 1)
Quarter: 2014Q2

REPORT INFORMATION
  Report Type: Spontaneous
  Country: US (occurrence: US)
  Receive Date: 20140425
  Receipt Date: 20140425
  Transmission Date: 20141212
  Serious: No
  Sender: FDA-Public Use
  Company Number: US-TEVA-477910USA

PATIENT
  Sex: 0

DRUGS (1)
  1. AZILECT [Suspect]
     Route: 048

REACTIONS (2)
  - Depression [Unknown]
  - Anxiety [Unknown]
